FAERS Safety Report 6231068-8 (Version None)
Quarter: 2009Q2

REPORT INFORMATION
  Report Type: 
  Country: None (occurrence: None)
  Receive Date: 20090611
  Receipt Date: 20090526
  Transmission Date: 20091009
  Serious: Yes (Hospitalization, Other)
  Sender: FDA-Public Use
  Company Number: 1-18618029

PATIENT
  Age: 25 Year
  Sex: Female

DRUGS (5)
  1. LAMOTRIGINE [Suspect]
     Indication: EPILEPSY
     Dosage: 25 MG DAILY, ORAL
     Route: 048
  2. AMOXICILLIN [Concomitant]
  3. PHENYTOIN [Concomitant]
  4. RABEPRAZOLE SODIUM [Concomitant]
  5. LEVONORGESTREL + ETHINYL ESTRADIOL [Concomitant]

REACTIONS (15)
  - CARDIAC MURMUR [None]
  - CONJUNCTIVITIS [None]
  - DYSAESTHESIA [None]
  - GAMMA-GLUTAMYLTRANSFERASE INCREASED [None]
  - HYPERREFLEXIA [None]
  - LEUKOPENIA [None]
  - MENINGITIS ASEPTIC [None]
  - MYALGIA [None]
  - NEUTROPENIA [None]
  - PERIORBITAL OEDEMA [None]
  - PYREXIA [None]
  - SJOGREN'S SYNDROME [None]
  - TACHYCARDIA [None]
  - THROMBOCYTOPENIA [None]
  - VITH NERVE PARALYSIS [None]
